FAERS Safety Report 5897410-2 (Version None)
Quarter: 2008Q3

REPORT INFORMATION
  Report Type: 
  Country: None (occurrence: None)
  Receive Date: 20080925
  Receipt Date: 20080918
  Transmission Date: 20090109
  Serious: Yes (Other)
  Sender: FDA-Public Use
  Company Number: JP-JNJFOC-20080904887

PATIENT
  Age: 81 Year
  Sex: Female

DRUGS (5)
  1. ITRIZOLE [Suspect]
     Indication: ONYCHOMYCOSIS
     Route: 048
  2. PRAVASTATIN SODIUM [Concomitant]
     Route: 048
  3. BASEN [Concomitant]
     Route: 048
  4. METHYLCOBAL [Concomitant]
     Route: 065
  5. DEPAS [Concomitant]
     Route: 048

REACTIONS (3)
  - CHEST PAIN [None]
  - PALPITATIONS [None]
  - TACHYCARDIA [None]
